FAERS Safety Report 7178165-0 (Version None)
Quarter: 2010Q4

REPORT INFORMATION
  Report Type: 
  Country: None (occurrence: None)
  Receive Date: 20101220
  Receipt Date: 20101215
  Transmission Date: 20110411
  Serious: Yes (Hospitalization)
  Sender: FDA-Public Use
  Company Number: B0690025A

PATIENT
  Sex: Male

DRUGS (2)
  1. TOPOTECAN [Suspect]
     Indication: NEOPLASM
     Dosage: .75MGM2 CYCLIC
     Route: 042
     Dates: start: 20101116
  2. TEMOZOLOMIDE [Suspect]
     Indication: NEOPLASM
     Dosage: 150MGM2 CYCLIC
     Route: 048
     Dates: start: 20101116

REACTIONS (1)
  - FEBRILE BONE MARROW APLASIA [None]
